FAERS Safety Report 20534835 (Version 1)
Quarter: 2022Q1

REPORT INFORMATION
  Report Type: Spontaneous
  Country: PL (occurrence: PL)
  Receive Date: 20220302
  Receipt Date: 20220302
  Transmission Date: 20220423
  Serious: Yes (Hospitalization)
  Sender: FDA-Public Use
  Company Number: PL-KRKA-PL2022K02122LIT

PATIENT
  Age: 65 Year
  Sex: Male

DRUGS (1)
  1. DEXAMETHASONE [Suspect]
     Active Substance: DEXAMETHASONE
     Indication: Pemphigoid
     Dosage: 1 MG/KG
     Route: 065

REACTIONS (1)
  - Hyperglycaemia [Not Recovered/Not Resolved]
